FAERS Safety Report 17495520 (Version 1)
Quarter: 2020Q1

REPORT INFORMATION
  Report Type: Spontaneous
  Country: US (occurrence: US)
  Receive Date: 20200304
  Receipt Date: 20200304
  Transmission Date: 20200409
  Serious: No
  Sender: FDA-Public Use
  Company Number: US-PFIZER INC-2020009150

PATIENT
  Age: 65 Year
  Sex: Female

DRUGS (2)
  1. PREGABALIN. [Suspect]
     Active Substance: PREGABALIN
     Indication: ACUTE DISSEMINATED ENCEPHALOMYELITIS
     Dosage: 50 MG, 2X/DAY [TAKE 1 CAP BY MOUTH TWICE A DAY. MAX DAILY AMOUNT 100MG]
     Route: 048
     Dates: start: 20200109
  2. PREGABALIN. [Suspect]
     Active Substance: PREGABALIN
     Dosage: 75 MG, 2X/DAY (75MG TWICE A DAY BY MOUTH)
     Route: 048
     Dates: start: 20200217

REACTIONS (2)
  - Off label use [Unknown]
  - Drug ineffective for unapproved indication [Unknown]
